FAERS Safety Report 6489771-0 (Version None)
Quarter: 2009Q4

REPORT INFORMATION
  Report Type: 
  Country: None (occurrence: None)
  Receive Date: 20091207
  Receipt Date: 20091123
  Transmission Date: 20100525
  Serious: Yes (Death, Hospitalization)
  Sender: FDA-Public Use
  Company Number: 2009AC000383

PATIENT
  Age: 57 Year
  Sex: Female

DRUGS (20)
  1. DIGOXIN [Suspect]
     Indication: ATRIAL FIBRILLATION
     Dosage: 0.125 MG;QD;PO
     Route: 048
  2. ASCORBIC ACID [Concomitant]
  3. VITAMIN B-12 [Concomitant]
  4. CARDIZEM [Concomitant]
  5. REVATIO [Concomitant]
  6. TIKOSYN [Concomitant]
  7. BENICAR [Concomitant]
  8. TAPERING [Concomitant]
  9. MULTI-VITAMIN [Concomitant]
  10. FOSAMAX [Concomitant]
  11. LASIX [Concomitant]
  12. ADVAIR DISKUS 100/50 [Concomitant]
  13. ACIPHEX [Concomitant]
  14. XOPENEX [Concomitant]
  15. DUONEB [Concomitant]
  16. PREDNISONE [Concomitant]
  17. NEXIUM [Concomitant]
  18. SPIRIVA [Concomitant]
  19. COUMADIN [Concomitant]
  20. POTASSIUM [Concomitant]

REACTIONS (14)
  - ANHEDONIA [None]
  - ANXIETY [None]
  - ASTHMA [None]
  - CARDIAC FAILURE CONGESTIVE [None]
  - CARDIO-RESPIRATORY ARREST [None]
  - CARDIOGENIC SHOCK [None]
  - DIZZINESS [None]
  - ECONOMIC PROBLEM [None]
  - FATIGUE [None]
  - INJURY [None]
  - MITRAL VALVE INCOMPETENCE [None]
  - PAIN [None]
  - PULMONARY HYPERTENSION [None]
  - RESPIRATORY FAILURE [None]
